FAERS Safety Report 6581171-8 (Version None)
Quarter: 2010Q1

REPORT INFORMATION
  Report Type: 
  Country: None (occurrence: None)
  Receive Date: 20100215
  Receipt Date: 20100204
  Transmission Date: 20100710
  Serious: Yes (Death, Hospitalization, Other)
  Sender: FDA-Public Use
  Company Number: US-AMGEN-QUU366269

PATIENT
  Sex: Male
  Weight: 95.3 kg

DRUGS (24)
  1. NEUPOGEN [Suspect]
     Indication: MYELODYSPLASTIC SYNDROME
     Dates: start: 20060101
  2. PROCRIT [Suspect]
     Indication: MYELODYSPLASTIC SYNDROME
  3. REVLIMID [Concomitant]
  4. SEROQUEL [Concomitant]
  5. EFFEXOR [Concomitant]
  6. SINGULAIR [Concomitant]
  7. CITALOPRAM [Concomitant]
  8. TORSEMIDE [Concomitant]
  9. NEXIUM [Concomitant]
  10. LEVOXYL [Concomitant]
  11. FOLTX [Concomitant]
  12. POTASSIUM [Concomitant]
  13. FLOMAX [Concomitant]
  14. FEXOFENADINE [Concomitant]
  15. DIOVAN [Concomitant]
  16. NIASPAN [Concomitant]
  17. DECITABINE [Concomitant]
  18. TYLENOL-500 [Concomitant]
  19. LASIX [Concomitant]
  20. LEVEMIR [Concomitant]
  21. PRILOSEC [Concomitant]
  22. LOVAZA [Concomitant]
  23. CLARITIN [Concomitant]
  24. MULTI-VITAMINS [Concomitant]

REACTIONS (18)
  - ACUTE MYELOID LEUKAEMIA [None]
  - ACUTE RESPIRATORY FAILURE [None]
  - ATRIAL FIBRILLATION [None]
  - BACK PAIN [None]
  - CELLULITIS [None]
  - DIZZINESS [None]
  - FAILURE TO THRIVE [None]
  - FALL [None]
  - FULL BLOOD COUNT DECREASED [None]
  - HAEMATOMA [None]
  - LETHARGY [None]
  - MOUTH ULCERATION [None]
  - MYELODYSPLASTIC SYNDROME [None]
  - PLATELET COUNT DECREASED [None]
  - PNEUMONIA [None]
  - PRURITUS [None]
  - RASH [None]
  - SYNCOPE [None]
